FAERS Safety Report 19641343 (Version 1)
Quarter: 2021Q3

REPORT INFORMATION
  Report Type: Spontaneous
  Country: US (occurrence: US)
  Receive Date: 20210730
  Receipt Date: 20210730
  Transmission Date: 20211014
  Serious: No
  Sender: FDA-Public Use
  Company Number: US-DENTSPLY PHARMACEUTICAL-2020SCDP000277

PATIENT

DRUGS (2)
  1. LIDOCAINE HCL [Suspect]
     Active Substance: LIDOCAINE HYDROCHLORIDE
     Indication: NEW DAILY PERSISTENT HEADACHE
  2. LIDOCAINE HCL [Suspect]
     Active Substance: LIDOCAINE HYDROCHLORIDE
     Indication: PAIN MANAGEMENT
     Dosage: 200 MILLIGRAM, INFUSION OR WEIGHT?APPROPRIATE DOSE OF LIDOCAINE PER HOSPITAL STANDARD PROTOCOL
     Route: 042

REACTIONS (5)
  - Dizziness [Recovered/Resolved]
  - Auditory disorder [Recovered/Resolved]
  - Somnolence [Recovered/Resolved]
  - Hypoaesthesia oral [Recovered/Resolved]
  - Visual impairment [Recovered/Resolved]
